FAERS Safety Report 10183077 (Version 1)
Quarter: 2014Q2

REPORT INFORMATION
  Report Type: Spontaneous
  Country: US (occurrence: US)
  Receive Date: 20140520
  Receipt Date: 20140520
  Transmission Date: 20141212
  Serious: No
  Sender: FDA-Public Use
  Company Number: US-BAYER-2014-073564

PATIENT
  Age: 69 Year
  Sex: Female
  Weight: 91 kg

DRUGS (8)
  1. ALEVE CAPLET [Suspect]
     Indication: ANALGESIC THERAPY
     Dosage: 2 DF, QD
     Route: 048
     Dates: start: 2013
  2. BAYER EXTRA STRENGTH BACK + BODY PAIN [Suspect]
     Indication: ANALGESIC THERAPY
     Dosage: 2 DF, QD
     Route: 048
     Dates: start: 201311
  3. BAYER EXTRA STRENGTH BACK + BODY PAIN [Suspect]
     Indication: CARDIOVASCULAR EVENT PROPHYLAXIS
  4. PROZAC [Concomitant]
     Dosage: UNK
  5. KLONOPIN [Concomitant]
     Dosage: UNK
  6. TRAZODONE [Concomitant]
     Dosage: UNK
  7. TOPAMAX [Concomitant]
     Dosage: UNK
  8. KRILL OIL [Concomitant]
     Dosage: UNK

REACTIONS (2)
  - Incorrect drug administration duration [None]
  - Incorrect drug administration duration [None]
